FAERS Safety Report 4583093-0 (Version None)
Quarter: 2005Q1

REPORT INFORMATION
  Report Type: 
  Country: None (occurrence: None)
  Receive Date: 20050125
  Receipt Date: 20041122
  Transmission Date: 20050727
  Serious: No
  Sender: FDA-Public Use
  Company Number: USA041081819

PATIENT
  Age: 81 Year
  Sex: Female

DRUGS (5)
  1. FORTEO [Suspect]
     Indication: OSTEOPOROSIS
     Dates: start: 20041015
  2. SYNTHROID [Concomitant]
  3. CALCIUM GLUCONATE [Concomitant]
  4. MULTI-VITAMIN [Concomitant]
  5. OCUVITE [Concomitant]

REACTIONS (5)
  - INJECTION SITE HAEMORRHAGE [None]
  - MUSCLE SPASMS [None]
  - MYALGIA [None]
  - PAIN [None]
  - RHINORRHOEA [None]
